FAERS Safety Report 23453094 (Version 1)
Quarter: 2024Q1

REPORT INFORMATION
  Report Type: Spontaneous
  Country: US (occurrence: US)
  Receive Date: 20240129
  Receipt Date: 20240129
  Transmission Date: 20240410
  Serious: Yes (Other)
  Sender: FDA-Public Use
  Company Number: US-SUN PHARMACEUTICAL INDUSTRIES LTD-2024R1-429063

PATIENT
  Sex: Female

DRUGS (5)
  1. MAGNESIUM SULFATE [Suspect]
     Active Substance: MAGNESIUM SULFATE\MAGNESIUM SULFATE HEPTAHYDRATE
     Indication: Nervous system disorder prophylaxis
     Dosage: UNK (6 G BOLUS)
     Route: 065
  2. MAGNESIUM SULFATE [Suspect]
     Active Substance: MAGNESIUM SULFATE\MAGNESIUM SULFATE HEPTAHYDRATE
     Dosage: UNK (2 G/HOUR)
     Route: 065
  3. MAGNESIUM SULFATE [Suspect]
     Active Substance: MAGNESIUM SULFATE\MAGNESIUM SULFATE HEPTAHYDRATE
     Dosage: UNK (1 G/HOUR)
     Route: 065
  4. METOPROLOL [Suspect]
     Active Substance: METOPROLOL
     Indication: Cardiac discomfort
     Dosage: 12.5 MILLIGRAM, TID
     Route: 065
  5. CALCIUM [Suspect]
     Active Substance: CALCIUM
     Indication: Blood calcium decreased
     Dosage: UNK (2 G)
     Route: 042

REACTIONS (6)
  - Exposure during pregnancy [Unknown]
  - Hypocalcaemia [Recovered/Resolved]
  - Hypermagnesaemia [Recovered/Resolved]
  - Prinzmetal angina [Recovered/Resolved]
  - Electrocardiogram QT prolonged [Recovered/Resolved]
  - Premature delivery [Unknown]
